FAERS Safety Report 24060628 (Version 2)
Quarter: 2024Q3

REPORT INFORMATION
  Report Type: Spontaneous
  Country: CN (occurrence: CN)
  Receive Date: 20240708
  Receipt Date: 20240801
  Transmission Date: 20241016
  Serious: Yes (Other)
  Sender: PPD DEVELOPMENT LP
  Company Number: CN-CSTONE PHARMACEUTICALS (SUZHOU) CO., LTD.-2024CN00707

PATIENT

DRUGS (2)
  1. GAVRETO [Suspect]
     Active Substance: PRALSETINIB
     Indication: Lung adenocarcinoma
     Dosage: 400 MILLIGRAM
     Route: 048
     Dates: start: 20240319, end: 20240426
  2. GAVRETO [Suspect]
     Active Substance: PRALSETINIB
     Dosage: 4 CAPSULES ONCE
     Route: 048
     Dates: start: 20240428, end: 20240621

REACTIONS (11)
  - Pulmonary fibrosis [Not Recovered/Not Resolved]
  - Interstitial lung disease [Unknown]
  - Inflammation [Recovering/Resolving]
  - Fungal infection [Not Recovered/Not Resolved]
  - Bacterial infection [Not Recovered/Not Resolved]
  - Neoplasm progression [Not Recovered/Not Resolved]
  - Decreased appetite [Not Recovered/Not Resolved]
  - Hypogeusia [Not Recovered/Not Resolved]
  - Asthenia [Not Recovered/Not Resolved]
  - Mouth ulceration [Not Recovered/Not Resolved]
  - Pyrexia [Unknown]

NARRATIVE: CASE EVENT DATE: 20240426
